FAERS Safety Report 24796771 (Version 1)
Quarter: 2025Q1

REPORT INFORMATION
  Report Type: Report from Study
  Country: ZA (occurrence: ZA)
  Receive Date: 20250101
  Receipt Date: 20250101
  Transmission Date: 20250409
  Serious: Yes (Other)
  Sender: ROCHE
  Company Number: ZA-ROCHE-3347564

PATIENT
  Age: 54 Year
  Sex: Female

DRUGS (1)
  1. OCREVUS [Suspect]
     Active Substance: OCRELIZUMAB
     Indication: Primary progressive multiple sclerosis
     Dosage: THEREAFTER 600MG EVERY 6 MONTHS
     Route: 041
     Dates: start: 20220920

REACTIONS (2)
  - Breast cancer [Unknown]
  - Maternal exposure before pregnancy [Unknown]

NARRATIVE: CASE EVENT DATE: 20221101
